FAERS Safety Report 25411666 (Version 1)
Quarter: 2025Q2

REPORT INFORMATION
  Report Type: Report from Study
  Country: IN (occurrence: IN)
  Receive Date: 20250609
  Receipt Date: 20250609
  Transmission Date: 20250717
  Serious: Yes (Death)
  Sender: ROCHE
  Company Number: IN-ROCHE-10000234340

PATIENT
  Age: 69 Year
  Sex: Male

DRUGS (2)
  1. TECENTRIQ [Suspect]
     Active Substance: ATEZOLIZUMAB
     Indication: Hepatocellular carcinoma
     Route: 042
  2. ACETAMINOPHEN [Concomitant]
     Active Substance: ACETAMINOPHEN

REACTIONS (11)
  - Asthenia [Unknown]
  - Oral mucosal eruption [Unknown]
  - Back pain [Unknown]
  - Constipation [Unknown]
  - Headache [Unknown]
  - Peripheral swelling [Unknown]
  - Micturition disorder [Unknown]
  - Feeding disorder [Unknown]
  - Pain [Unknown]
  - Death [Fatal]
  - Gait disturbance [Unknown]

NARRATIVE: CASE EVENT DATE: 20250413
